FAERS Safety Report 23092473 (Version 2)
Quarter: 2023Q4

REPORT INFORMATION
  Report Type: Spontaneous
  Country: JP (occurrence: JP)
  Receive Date: 20231021
  Receipt Date: 20231213
  Transmission Date: 20240110
  Serious: Yes (Life-Threatening, Hospitalization, Other)
  Sender: FDA-Public Use
  Company Number: JP-ASTELLAS-2023JP011492

PATIENT
  Age: 41 Year
  Sex: Female

DRUGS (2)
  1. ZOLPIDEM TARTRATE [Suspect]
     Active Substance: ZOLPIDEM TARTRATE
     Indication: Depression
  2. AMOXAPINE [Suspect]
     Active Substance: AMOXAPINE
     Indication: Depression
     Dosage: 4200 MG
     Route: 048

REACTIONS (9)
  - Tonic convulsion [Unknown]
  - Disturbance in attention [Unknown]
  - Tachycardia [Unknown]
  - Dyskinesia [Unknown]
  - Myoclonus [Unknown]
  - Drug level increased [Unknown]
  - Intentional overdose [Unknown]
  - Metabolic acidosis [Unknown]
  - Status epilepticus [Unknown]
